FAERS Safety Report 7167642-4 (Version None)
Quarter: 2010Q4

REPORT INFORMATION
  Report Type: 
  Country: None (occurrence: None)
  Receive Date: 20101216
  Receipt Date: 20100621
  Transmission Date: 20110411
  Serious: No
  Sender: FDA-Public Use
  Company Number: A0866283A

PATIENT
  Age: 34 Year
  Sex: Male

DRUGS (1)
  1. NICOTINE POLACRILEX [Suspect]
     Dates: start: 20100616

REACTIONS (3)
  - DRUG ADMINISTRATION ERROR [None]
  - HYPOAESTHESIA [None]
  - PARAESTHESIA [None]
